FAERS Safety Report 11980343 (Version 2)
Quarter: 2018Q1

REPORT INFORMATION
  Report Type: Spontaneous
  Country: JP (occurrence: JP)
  Receive Date: 20160129
  Receipt Date: 20180313
  Transmission Date: 20180508
  Serious: Yes (Death, Other)
  Sender: FDA-Public Use
  Company Number: JP-BAYER-2016-016062

PATIENT
  Age: 77 Year
  Sex: Male

DRUGS (5)
  1. BAYASPIRIN 100 MG [Suspect]
     Active Substance: ASPIRIN
     Dosage: UNK
     Route: 048
  2. BAYASPIRIN 100 MG [Suspect]
     Active Substance: ASPIRIN
     Dosage: UNK
     Dates: start: 20150904
  3. SYMMETREL [Concomitant]
     Active Substance: AMANTADINE HYDROCHLORIDE
     Dosage: UNK
     Route: 048
  4. URIEF [Concomitant]
     Active Substance: SILODOSIN
     Dosage: UNK
     Route: 048
  5. MAGMITT [Concomitant]
     Active Substance: MAGNESIUM OXIDE
     Dosage: UNK
     Route: 048

REACTIONS (12)
  - Infection [None]
  - Sepsis [Unknown]
  - Death [Fatal]
  - Musculoskeletal stiffness [None]
  - Blood pressure decreased [None]
  - Normal pressure hydrocephalus [None]
  - Hepatic function abnormal [None]
  - Platelet count decreased [Unknown]
  - Weight decreased [None]
  - Dysphagia [None]
  - Subdural haematoma [Unknown]
  - Nephritis [None]

NARRATIVE: CASE EVENT DATE: 201601
